FAERS Safety Report 8906087 (Version 3)
Quarter: 2013Q1

REPORT INFORMATION
  Report Type: Spontaneous
  Country: JP (occurrence: JP)
  Receive Date: 20121110
  Receipt Date: 20130122
  Transmission Date: 20140127
  Serious: Yes (Hospitalization, Disabling)
  Sender: FDA-Public Use
  Company Number: JP-009507513-1211JPN001913

PATIENT
  Age: 87 Year
  Sex: Female

DRUGS (11)
  1. BONALON [Suspect]
     Indication: OSTEOPOROSIS
     Dosage: 35 MG, QW
     Route: 048
     Dates: start: 2007, end: 20120826
  2. REZALTAS [Concomitant]
     Indication: HYPERTENSION
     Dosage: 1 DF, QD
     Route: 048
     Dates: start: 20110210
  3. OLMETEC [Concomitant]
     Indication: HYPERTENSION
     Dosage: 20 MG, QW
     Route: 048
  4. ARTIST [Concomitant]
     Indication: HYPERTENSION
     Dosage: 10 MG, UNK
     Route: 048
     Dates: start: 20040315
  5. MAGMITT [Concomitant]
     Indication: CONSTIPATION
     Dosage: 990 MG, QD
     Route: 048
  6. ALOSENN (SENNA) [Concomitant]
     Dosage: 0.5 G, UNK
     Route: 048
  7. MYSLEE [Concomitant]
     Indication: INSOMNIA
     Dosage: 5 MG, QD
     Route: 048
  8. DEPAS [Concomitant]
     Indication: ANXIETY
     Dosage: 1.0 MG, UNK
     Route: 048
  9. LIMARMONE [Concomitant]
     Indication: LUMBAR SPINAL STENOSIS
     Dosage: 15 MICROGRAM, UNK
     Route: 048
  10. MECOBAMIDE [Concomitant]
     Indication: LUMBAR SPINAL STENOSIS
     Dosage: 1500 MICROGRAM, QD
     Route: 048
  11. JUVELA [Concomitant]
     Indication: LUMBAR SPINAL STENOSIS
     Dosage: 150 MG, QD
     Route: 048

REACTIONS (3)
  - Osteomyelitis [Recovering/Resolving]
  - Cellulitis [Recovered/Resolved with Sequelae]
  - Sepsis [Recovered/Resolved]
